FAERS Safety Report 8280240-4 (Version None)
Quarter: 2012Q2

REPORT INFORMATION
  Report Type: 
  Country: None (occurrence: None)
  Receive Date: 20120412
  Receipt Date: 20111018
  Transmission Date: 20120825
  Serious: No
  Sender: FDA-Public Use
  Company Number: US-ASTRAZENECA-2011SE44096

PATIENT
  Age: 57 Year
  Sex: Female

DRUGS (7)
  1. GENERIC DRUGS [Concomitant]
     Indication: HYPERTENSION
  2. CARBATROL [Concomitant]
     Indication: EPILEPSY
  3. NEXIUM [Suspect]
     Indication: GASTROOESOPHAGEAL REFLUX DISEASE
     Route: 048
  4. PREMPRO [Concomitant]
     Indication: HOT FLUSH
  5. CALCIUM CARBONATE [Concomitant]
  6. OMEPRAZOLE [Concomitant]
  7. GENERIC NOSE SPRAY [Concomitant]
     Indication: MULTIPLE ALLERGIES

REACTIONS (5)
  - DRUG DOSE OMISSION [None]
  - DYSPEPSIA [None]
  - MALAISE [None]
  - NAUSEA [None]
  - APHAGIA [None]
